FAERS Safety Report 9382413 (Version 12)
Quarter: 2018Q4

REPORT INFORMATION
  Report Type: Report from Study
  Country: US (occurrence: US)
  Receive Date: 20130703
  Receipt Date: 20181001
  Transmission Date: 20190205
  Serious: Yes (Life-Threatening, Hospitalization)
  Sender: FDA-Public Use
  Company Number: US-JNJFOC-20130700454

PATIENT
  Age: 53 Year
  Sex: Male
  Weight: 95.26 kg

DRUGS (3)
  1. USTEKINUMAB [Suspect]
     Active Substance: USTEKINUMAB
     Indication: PSORIASIS
     Route: 058
     Dates: start: 201001
  2. USTEKINUMAB [Suspect]
     Active Substance: USTEKINUMAB
     Indication: PSORIASIS
     Route: 058
     Dates: start: 20091231
  3. USTEKINUMAB [Suspect]
     Active Substance: USTEKINUMAB
     Indication: PSORIASIS
     Route: 058
     Dates: start: 20130220, end: 20130220

REACTIONS (14)
  - Subdural haematoma [Recovered/Resolved with Sequelae]
  - Subarachnoid haemorrhage [Recovered/Resolved]
  - Loss of consciousness [Recovering/Resolving]
  - Atelectasis [Recovered/Resolved]
  - Pneumonia aspiration [Recovered/Resolved]
  - Dysphagia [Recovered/Resolved]
  - Alcohol poisoning [Recovering/Resolving]
  - Intervertebral disc degeneration [Recovering/Resolving]
  - Brain oedema [Recovered/Resolved with Sequelae]
  - Pneumothorax [Recovered/Resolved]
  - Fall [Recovering/Resolving]
  - Pleural effusion [Recovered/Resolved]
  - Postoperative respiratory failure [Recovered/Resolved]
  - Hypokalaemia [Recovering/Resolving]

NARRATIVE: CASE EVENT DATE: 2013
